FAERS Safety Report 4490246-9 (Version None)
Quarter: 2004Q4

REPORT INFORMATION
  Report Type: 
  Country: None (occurrence: None)
  Receive Date: 20041028
  Receipt Date: 20040907
  Transmission Date: 20050328
  Serious: Yes (Hospitalization)
  Sender: FDA-Public Use
  Company Number: 2004IM000843

PATIENT
  Age: 51 Year
  Sex: Male
  Weight: 122.4712 kg

DRUGS (3)
  1. INFERGEN [Suspect]
     Indication: HEPATITIS C
     Dosage: 15 UG; QD; SUBCUTANEOUS
     Route: 058
     Dates: start: 20040101, end: 20040903
  2. DRUG USED IN DIABETES [Concomitant]
  3. RIBAVIRIN [Concomitant]

REACTIONS (7)
  - ABDOMINAL ABSCESS [None]
  - HYPERSENSITIVITY [None]
  - INFECTION [None]
  - INJECTION SITE ABSCESS [None]
  - INJECTION SITE ERYTHEMA [None]
  - INJECTION SITE PAIN [None]
  - INJECTION SITE WARMTH [None]
